FAERS Safety Report 10784227 (Version 2)
Quarter: 2015Q1

REPORT INFORMATION
  Report Type: Spontaneous
  Country: IT (occurrence: IT)
  Receive Date: 20150211
  Receipt Date: 20150305
  Transmission Date: 20150721
  Serious: Yes (Hospitalization)
  Sender: FDA-Public Use
  Company Number: IT-ROCHE-1535433

PATIENT
  Age: 66 Year
  Sex: Female

DRUGS (2)
  1. CARBOPLATIN. [Suspect]
     Active Substance: CARBOPLATIN
     Indication: PRODUCT USED FOR UNKNOWN INDICATION
     Dosage: 450 MG/45ML SOLUTION FOR INFUSION?CONCENTRATE FOR SOLUTION FOR INTRAVENOUS INFUSION
     Route: 042
     Dates: start: 20131107, end: 20131107
  2. HERCEPTIN [Suspect]
     Active Substance: TRASTUZUMAB
     Indication: PRODUCT USED FOR UNKNOWN INDICATION
     Dosage: 150 MG POWDER FOR CONCENTRATE FOR IV INFUSION?POWDER AND SOLVENT FOR SOLUTION FOR INTRAVENOUS INFUSI
     Route: 042
     Dates: start: 20131107, end: 20131107

REACTIONS (2)
  - Feeling hot [Recovering/Resolving]
  - Urticaria [Recovering/Resolving]

NARRATIVE: CASE EVENT DATE: 20131107
